FAERS Safety Report 5344430-2 (Version None)
Quarter: 2007Q2

REPORT INFORMATION
  Report Type: 
  Country: None (occurrence: None)
  Receive Date: 20070604
  Receipt Date: 20070329
  Transmission Date: 20071010
  Serious: Yes (Other)
  Sender: FDA-Public Use
  Company Number: JP-PFIZER INC-2007039137

PATIENT
  Age: 64 Year
  Sex: Female

DRUGS (1)
  1. MIGLITOL TABLET [Suspect]
     Dosage: DAILY DOSE:150MG
     Route: 048
     Dates: start: 20061021, end: 20061201

REACTIONS (1)
  - LIVER FUNCTION TEST ABNORMAL [None]
